FAERS Safety Report 15605558 (Version 2)
Quarter: 2018Q4

REPORT INFORMATION
  Report Type: Spontaneous
  Country: DE (occurrence: DE)
  Receive Date: 20181112
  Receipt Date: 20181114
  Transmission Date: 20190205
  Serious: Yes (Life-Threatening, Hospitalization, Disabling, Other)
  Sender: FDA-Public Use
  Company Number: DE-TEVA-2018-DE-974625

PATIENT
  Age: 51 Year
  Sex: Female
  Weight: 67 kg

DRUGS (2)
  1. DOXY 200 MG [Suspect]
     Active Substance: DOXYCYCLINE
     Route: 048
     Dates: start: 20161101, end: 20161102
  2. METRONIDAZOL ARISTO 400MG TABLETTEN [Suspect]
     Active Substance: METRONIDAZOLE
     Indication: GASTROINTESTINAL INFECTION
     Dosage: 3X 1
     Route: 048
     Dates: start: 20161031, end: 20161103

REACTIONS (40)
  - Constipation [Recovering/Resolving]
  - Paraesthesia [Recovering/Resolving]
  - Intraocular pressure increased [Recovering/Resolving]
  - Trismus [Recovering/Resolving]
  - Hypotonia [Recovering/Resolving]
  - Rash pustular [Recovered/Resolved]
  - Insomnia [Recovering/Resolving]
  - Gastrointestinal pain [Recovering/Resolving]
  - Muscle contractions involuntary [Recovering/Resolving]
  - Ataxia [Recovering/Resolving]
  - Nervous system disorder [Recovering/Resolving]
  - Product intolerance [Recovering/Resolving]
  - Disturbance in attention [Recovered/Resolved]
  - Hypoaesthesia [Recovering/Resolving]
  - Restlessness [Recovering/Resolving]
  - Alopecia [Recovered/Resolved]
  - Nasal congestion [Not Recovered/Not Resolved]
  - Tinnitus [Not Recovered/Not Resolved]
  - Confusional state [Unknown]
  - Muscle spasms [Recovering/Resolving]
  - Photophobia [Recovered/Resolved]
  - Gastrointestinal hypermotility [Recovering/Resolving]
  - Asthenia [Recovering/Resolving]
  - Sensation of foreign body [Recovered/Resolved]
  - Vision blurred [Unknown]
  - Gait disturbance [Unknown]
  - Arthralgia [Recovering/Resolving]
  - Anxiety [Recovering/Resolving]
  - Food allergy [Not Recovered/Not Resolved]
  - Visual impairment [Recovered/Resolved]
  - Dry mouth [Recovering/Resolving]
  - Neuropathy peripheral [Recovering/Resolving]
  - Hepatorenal syndrome [Recovering/Resolving]
  - Breast engorgement [Recovered/Resolved]
  - Palpitations [Recovering/Resolving]
  - Dysgeusia [Recovered/Resolved]
  - Pharyngeal oedema [Recovering/Resolving]
  - Menorrhagia [Recovered/Resolved]
  - Myalgia [Recovering/Resolving]
  - Dizziness [Recovering/Resolving]

NARRATIVE: CASE EVENT DATE: 20161103
